FAERS Safety Report 11144041 (Version 1)
Quarter: 2015Q2

REPORT INFORMATION
  Report Type: Spontaneous
  Country: DE (occurrence: DE)
  Receive Date: 20150528
  Receipt Date: 20150528
  Transmission Date: 20150821
  Serious: Yes (Other)
  Sender: FDA-Public Use
  Company Number: DE-009507513-2009SP009189

PATIENT
  Age: 14 Year
  Sex: Male
  Weight: 78.4 kg

DRUGS (2)
  1. REBETOL [Suspect]
     Active Substance: RIBAVIRIN
     Dosage: 400-600 MG
     Route: 048
     Dates: start: 20080718, end: 20081224
  2. PEGINTRON [Suspect]
     Active Substance: PEGINTERFERON ALFA-2B
     Dosage: 120 ?G, QW
     Route: 058
     Dates: start: 20080718, end: 20081224

REACTIONS (2)
  - Autoimmune thyroiditis [Recovered/Resolved]
  - Hypothyroidism [Unknown]

NARRATIVE: CASE EVENT DATE: 20081030
